FAERS Safety Report 9871739 (Version 1)
Quarter: 2014Q1

REPORT INFORMATION
  Report Type: Spontaneous
  Country: IT (occurrence: IT)
  Receive Date: 20140205
  Receipt Date: 20140205
  Transmission Date: 20141002
  Serious: Yes (Death)
  Sender: FDA-Public Use
  Company Number: IT-BAXTER-2014BAX004391

PATIENT
  Age: 74 Year
  Sex: Male
  Weight: 70 kg

DRUGS (4)
  1. SODIO CLORURO BAXTER S.P.A. 0,9% [Suspect]
     Indication: SQUAMOUS CELL CARCINOMA OF LUNG
     Route: 042
     Dates: start: 20131122, end: 20131217
  2. CARBOPLATIN [Suspect]
     Indication: SQUAMOUS CELL CARCINOMA OF LUNG
     Route: 042
     Dates: start: 20131123, end: 20131218
  3. GEMCITABINE [Suspect]
     Indication: SQUAMOUS CELL CARCINOMA OF LUNG
     Route: 042
     Dates: start: 20131122, end: 20131217
  4. ABCIXIMAB [Suspect]
     Indication: PRODUCT USED FOR UNKNOWN INDICATION
     Route: 065
     Dates: start: 20140112, end: 20140112

REACTIONS (4)
  - Acute myocardial infarction [Fatal]
  - Cardiogenic shock [Fatal]
  - Diarrhoea haemorrhagic [Unknown]
  - Anuria [Unknown]
